FAERS Safety Report 14924264 (Version 1)
Quarter: 2018Q2

REPORT INFORMATION
  Report Type: Spontaneous
  Country: US (occurrence: US)
  Receive Date: 20180522
  Receipt Date: 20180522
  Transmission Date: 20180711
  Serious: No
  Sender: FDA-Public Use
  Company Number: US-PFIZER INC-2018205033

PATIENT
  Age: 78 Year
  Sex: Female

DRUGS (1)
  1. IBRANCE [Suspect]
     Active Substance: PALBOCICLIB
     Indication: NEOPLASM MALIGNANT
     Dosage: 100 MG, CYCLIC (DAILY FOR 21 DAYS)
     Route: 048

REACTIONS (4)
  - Fatigue [Unknown]
  - Ill-defined disorder [Unknown]
  - Malaise [Unknown]
  - Full blood count decreased [Recovered/Resolved]
